FAERS Safety Report 9202148 (Version 1)
Quarter: 2013Q2

REPORT INFORMATION
  Report Type: Report from Study
  Country: JP (occurrence: JP)
  Receive Date: 20130401
  Receipt Date: 20130401
  Transmission Date: 20140414
  Serious: Yes (Other)
  Sender: FDA-Public Use
  Company Number: JP-CELGENEUS-087-21880-11032708

PATIENT
  Age: 70 Year
  Sex: Female

DRUGS (19)
  1. REVLIMID [Suspect]
     Indication: PLASMA CELL MYELOMA
     Dosage: 25 MILLIGRAM
     Route: 048
     Dates: start: 20110108, end: 20110125
  2. REVLIMID [Suspect]
     Dosage: 25 MILLIGRAM
     Route: 048
     Dates: start: 20110218, end: 20110225
  3. LENADEX [Suspect]
     Indication: PLASMA CELL MYELOMA
     Dosage: 40 MILLIGRAM
     Route: 048
     Dates: start: 20110108, end: 20110111
  4. LENADEX [Suspect]
     Dosage: 40 MILLIGRAM
     Route: 048
     Dates: start: 20110116, end: 20110119
  5. LENADEX [Suspect]
     Dosage: 40 MILLIGRAM
     Route: 048
     Dates: start: 20110125, end: 20110128
  6. LENADEX [Suspect]
     Dosage: 40 MILLIGRAM
     Route: 048
     Dates: start: 20110116, end: 20110119
  7. LENADEX [Suspect]
     Dosage: 40 MILLIGRAM
     Route: 048
     Dates: start: 20110125, end: 20110128
  8. LENADEX [Suspect]
     Dosage: 80 MILLIGRAM
     Route: 048
     Dates: start: 20110221, end: 20110224
  9. TAKEPRON [Concomitant]
     Indication: PROPHYLAXIS
     Dosage: 15 MILLIGRAM
     Route: 048
     Dates: start: 20110108
  10. TAKEPRON [Concomitant]
     Dosage: 15 MILLIGRAM
     Route: 048
     Dates: start: 20110218, end: 20110303
  11. METHYCOBAL [Concomitant]
     Indication: NEUROPATHY PERIPHERAL
     Dosage: 1500 MICROGRAM
     Route: 048
     Dates: start: 20110108
  12. METHYCOBAL [Concomitant]
     Dosage: 1500 MICROGRAM
     Route: 048
     Dates: start: 20110218, end: 20110303
  13. WARKMIN [Concomitant]
     Indication: PROPHYLAXIS
     Dosage: .5 MICROGRAM
     Route: 048
     Dates: start: 20110108
  14. ALFAROL [Concomitant]
     Indication: PROPHYLAXIS
     Dosage: .5 MICROGRAM
     Route: 048
     Dates: start: 20110218, end: 20110303
  15. PURSENNID [Concomitant]
     Indication: CONSTIPATION
     Dosage: 24 MILLIGRAM
     Route: 048
     Dates: start: 20110108
  16. MAGMITT [Concomitant]
     Indication: CONSTIPATION
     Dosage: 1980 MILLIGRAM
     Route: 048
     Dates: start: 20110108
  17. MAGMITT [Concomitant]
     Dosage: 990 MILLIGRAM
     Route: 048
     Dates: start: 20110218, end: 20110303
  18. BAKTAR [Concomitant]
     Indication: PROPHYLAXIS
     Dosage: 1.1429 TABLET
     Route: 048
     Dates: start: 20110221, end: 20110303
  19. ITRIZOLE [Concomitant]
     Indication: PROPHYLAXIS
     Dosage: 100 MILLIGRAM
     Route: 048
     Dates: start: 20110221, end: 20110303

REACTIONS (7)
  - Hepatic steatosis [Unknown]
  - Diabetes mellitus [Unknown]
  - Spinal compression fracture [Unknown]
  - Thrombocytopenia [Recovering/Resolving]
  - Neutrophil count decreased [Recovering/Resolving]
  - Platelet count decreased [Recovered/Resolved]
  - Hepatic function abnormal [Unknown]
